FAERS Safety Report 19922583 (Version 15)
Quarter: 2022Q4

REPORT INFORMATION
  Report Type: Report from Study
  Country: CA (occurrence: CA)
  Receive Date: 20211005
  Receipt Date: 20221221
  Transmission Date: 20230113
  Serious: Yes (Hospitalization, Other)
  Sender: FDA-Public Use
  Company Number: NVSC2021CA222581

PATIENT
  Age: 41 Year
  Sex: Female

DRUGS (9)
  1. COSENTYX [Suspect]
     Active Substance: SECUKINUMAB
     Indication: Ankylosing spondylitis
     Dosage: 300 MG, QMO
     Route: 058
     Dates: start: 20190822
  2. COSENTYX [Suspect]
     Active Substance: SECUKINUMAB
     Indication: Psoriatic arthropathy
     Dosage: 300 MG, QMO
     Route: 058
     Dates: start: 20190904
  3. COSENTYX [Suspect]
     Active Substance: SECUKINUMAB
     Dosage: UNK
     Route: 058
     Dates: start: 2022
  4. COSENTYX [Suspect]
     Active Substance: SECUKINUMAB
     Dosage: 450 MG, QMO
     Route: 058
  5. COSENTYX [Suspect]
     Active Substance: SECUKINUMAB
     Dosage: 450 MG, QMO
     Route: 058
     Dates: start: 20221102
  6. COSENTYX [Suspect]
     Active Substance: SECUKINUMAB
     Dosage: UNK (15 NOV)
     Route: 065
  7. COSENTYX [Suspect]
     Active Substance: SECUKINUMAB
     Dosage: 450 MG, QMO
     Route: 058
  8. NAPROXEN [Concomitant]
     Active Substance: NAPROXEN
     Indication: Tooth extraction
     Dosage: UNK, UNKNOWN
     Route: 065
  9. NAPROXEN [Concomitant]
     Active Substance: NAPROXEN
     Dosage: UNK
     Route: 048
     Dates: start: 20220926

REACTIONS (15)
  - Pulmonary embolism [Not Recovered/Not Resolved]
  - Feeling abnormal [Unknown]
  - Pulmonary oedema [Not Recovered/Not Resolved]
  - Thrombosis [Unknown]
  - Peripheral swelling [Unknown]
  - Arthralgia [Unknown]
  - SARS-CoV-2 test positive [Unknown]
  - Pain [Unknown]
  - Tooth abscess [Unknown]
  - Tooth infection [Unknown]
  - Cough [Unknown]
  - Nasopharyngitis [Unknown]
  - Illness [Unknown]
  - Fatigue [Unknown]
  - Off label use [Unknown]

NARRATIVE: CASE EVENT DATE: 20210101
